FAERS Safety Report 10027032 (Version 2)
Quarter: 2014Q2

REPORT INFORMATION
  Report Type: Spontaneous
  Country: US (occurrence: US)
  Receive Date: 20140321
  Receipt Date: 20140619
  Transmission Date: 20141212
  Serious: Yes (Hospitalization, Other)
  Sender: FDA-Public Use
  Company Number: US-JNJFOC-20131211953

PATIENT
  Age: 55 Year
  Sex: Male
  Weight: 98.88 kg

DRUGS (4)
  1. EXTRA STRENGTH TYLENOL [Suspect]
     Route: 065
  2. EXTRA STRENGTH TYLENOL [Suspect]
     Indication: PAIN
     Dosage: APPROXIMATELY 8 TO 10 PER DAY
     Route: 065
     Dates: start: 201106, end: 201106
  3. REGULAR STRENGTH TYLENOL [Suspect]
     Route: 065
  4. REGULAR STRENGTH TYLENOL [Suspect]
     Indication: PRODUCT USED FOR UNKNOWN INDICATION
     Route: 065
     Dates: start: 201106, end: 201106

REACTIONS (6)
  - Rhabdomyolysis [Unknown]
  - Skin ulcer [Unknown]
  - Acute hepatic failure [Unknown]
  - Overdose [Unknown]
  - Toxicity to various agents [Unknown]
  - Oedema peripheral [Unknown]
